FAERS Safety Report 5851678-7 (Version None)
Quarter: 2008Q3

REPORT INFORMATION
  Report Type: 
  Country: None (occurrence: None)
  Receive Date: 20080820
  Receipt Date: 20080815
  Transmission Date: 20090109
  Serious: Yes (Other)
  Sender: FDA-Public Use
  Company Number: US-BOEHRINGER INGELHEIM GMBH, GERMANY-2008-BP-12841RO

PATIENT
  Age: 72 Year
  Sex: Male

DRUGS (8)
  1. AMLODIPINE [Suspect]
  2. SIMVASTATIN [Suspect]
  3. ASPIRIN [Suspect]
  4. CALCIUM CARBONATE WITH VITAMIN D [Suspect]
     Indication: BONE DISORDER
  5. HYDRATION [Concomitant]
     Indication: MILK-ALKALI SYNDROME
  6. HYDRATION [Concomitant]
     Indication: OVERDOSE
  7. CALCITONIN [Concomitant]
     Indication: MILK-ALKALI SYNDROME
  8. CALCITONIN [Concomitant]
     Indication: OVERDOSE

REACTIONS (8)
  - ASTHENIA [None]
  - CONSTIPATION [None]
  - FATIGUE [None]
  - GAIT DISTURBANCE [None]
  - HYPERREFLEXIA [None]
  - LETHARGY [None]
  - MILK-ALKALI SYNDROME [None]
  - OVERDOSE [None]
